FAERS Safety Report 24145955 (Version 3)
Quarter: 2024Q4

REPORT INFORMATION
  Report Type: Spontaneous
  Country: US (occurrence: US)
  Receive Date: 20240729
  Receipt Date: 20241015
  Transmission Date: 20250114
  Serious: Yes (Other)
  Sender: UCB
  Company Number: US-UCBSA-2024032329

PATIENT
  Sex: Female
  Weight: 72.562 kg

DRUGS (1)
  1. CIMZIA [Suspect]
     Active Substance: CERTOLIZUMAB PEGOL
     Indication: Psoriatic arthropathy
     Dosage: 200 MILLIGRAM, EV 2 WEEKS(QOW), AS DIRECTED
     Route: 058
     Dates: start: 201804

REACTIONS (4)
  - Spinal fracture [Unknown]
  - Pain [Unknown]
  - Arthralgia [Unknown]
  - Nerve compression [Unknown]
